FAERS Safety Report 5889186 (Version 4)
Quarter: 2012Q4

REPORT INFORMATION
  Report Type: Spontaneous
  Country: DK (occurrence: None)
  Receive Date: 20050923
  Receipt Date: 20120820
  Transmission Date: 20130627
  Serious: Yes (Other)
  Sender: FDA-Public Use
  Company Number: 217712

PATIENT
  Age: 71 Year
  Sex: Female

DRUGS (10)
  1. INNOHEP [Suspect]
     Indication: THROMBOSIS PROPHYLAXIS
     Dosage: DOSE: 3500 IE DAILY, STRENGTH: 10.000 ANTI-XA IE/ML, SUBCUTANEOUS
     Route: 058
     Dates: start: 20120504
  2. ACETAMINOPHEN [Concomitant]
  3. IBUPROFEN ^ORIFARM^ [Concomitant]
  4. CLONAZEPAM [Concomitant]
  5. SERTRALIN ^ACTAVIS^ (SERTRALINE) [Concomitant]
  6. LAMOTRIGINE [Concomitant]
  7. PROPRANOLOL [Concomitant]
  8. LITHIUM CITRATE [Concomitant]
  9. SERTRALIN ^ACTAVIS^ (SERTRALINE HYDROCHLORIDE) [Concomitant]
  10. PROPYLTHIOURACIL (PROPYLTHIOURACIL) [Concomitant]

REACTIONS (3)
  - Pulmonary embolism [None]
  - Drug ineffective [None]
  - Product quality issue [None]
